FAERS Safety Report 5605237-1 (Version None)
Quarter: 2008Q1

REPORT INFORMATION
  Report Type: 
  Country: None (occurrence: None)
  Receive Date: 20080129
  Receipt Date: 20080116
  Transmission Date: 20080703
  Serious: Yes (Other)
  Sender: FDA-Public Use
  Company Number: DE-PFIZER INC-2008006549

PATIENT
  Sex: Male

DRUGS (3)
  1. NORVASC [Suspect]
     Indication: HYPERTENSION
     Route: 048
  2. NEURONTIN [Suspect]
     Indication: POLYNEUROPATHY
     Route: 048
  3. LORZAAR [Suspect]
     Indication: HYPERTENSION

REACTIONS (2)
  - BLOOD PRESSURE FLUCTUATION [None]
  - ORTHOSTATIC HYPOTENSION [None]
